FAERS Safety Report 12608544 (Version 2)
Quarter: 2016Q3

REPORT INFORMATION
  Report Type: Spontaneous
  Country: JP (occurrence: JP)
  Receive Date: 20160729
  Receipt Date: 20160803
  Transmission Date: 20161109
  Serious: Yes (Hospitalization, Other)
  Sender: FDA-Public Use
  Company Number: JP-009507513-1607JPN010808

PATIENT
  Age: 72 Year
  Sex: Female
  Weight: 52 kg

DRUGS (14)
  1. SELEGILINE HYDROCHLORIDE. [Suspect]
     Active Substance: SELEGILINE HYDROCHLORIDE
     Dosage: 5 MG, QD
     Route: 048
     Dates: start: 20160620, end: 20160627
  2. NEOMALLERMIN TR [Concomitant]
     Dosage: DAILY DOSAGE UNKNOWN, FORMULATION (POR)
     Route: 048
  3. MADOPAR [Suspect]
     Active Substance: BENSERAZIDE HYDROCHLORIDE\LEVODOPA
     Indication: PARKINSONISM
     Dosage: 1 DF, TID
     Route: 048
     Dates: start: 20160516, end: 20160527
  4. BI SIFROL [Suspect]
     Active Substance: PRAMIPEXOLE
     Indication: PARKINSONISM
     Dosage: 0.125 MG, QD
     Route: 048
     Dates: start: 20160701, end: 20160704
  5. MENESIT TABLETS - 100 [Suspect]
     Active Substance: CARBIDOPA\LEVODOPA
     Dosage: 100 MG, TID
     Route: 048
     Dates: start: 20150908, end: 20160420
  6. MAGMITT [Concomitant]
     Active Substance: MAGNESIUM OXIDE
     Dosage: DAILY DOSAGE UNKNOWN., FORMULATION (POR)
     Route: 048
  7. SELEGILINE HYDROCHLORIDE. [Suspect]
     Active Substance: SELEGILINE HYDROCHLORIDE
     Indication: PARKINSONISM
     Dosage: 2.5 MG, QD
     Route: 048
     Dates: start: 20160615, end: 20160619
  8. BROTIZOLAM [Concomitant]
     Active Substance: BROTIZOLAM
     Indication: INSOMNIA
     Dosage: DAILY DOSAGE UNKNOWN
     Route: 048
  9. AMITIZA [Concomitant]
     Active Substance: LUBIPROSTONE
     Indication: CONSTIPATION
     Dosage: DAILY DOSAGE UNKNOWN
     Route: 048
     Dates: end: 20160421
  10. SENNOSIDES. [Concomitant]
     Active Substance: SENNOSIDES
     Dosage: DAILY DOSAGE UNKNOWN, FORMULATION(POR)
     Route: 048
  11. EPINASTINE HYDROCHLORIDE. [Concomitant]
     Active Substance: EPINASTINE HYDROCHLORIDE
     Dosage: DAILY DOSAGE UNKNOWN
     Route: 048
  12. MENESIT TABLETS - 100 [Suspect]
     Active Substance: CARBIDOPA\LEVODOPA
     Indication: PARKINSONISM
     Dosage: DAILY DOSAGE UNKNOWN
     Route: 048
     Dates: start: 20150421
  13. SELEGILINE HYDROCHLORIDE. [Suspect]
     Active Substance: SELEGILINE HYDROCHLORIDE
     Dosage: 3.75 MG, BID
     Route: 048
     Dates: start: 20160628
  14. BI SIFROL [Suspect]
     Active Substance: PRAMIPEXOLE
     Dosage: 0.25 MG, QD
     Route: 048
     Dates: start: 20160705, end: 20160711

REACTIONS (2)
  - Drug eruption [Recovered/Resolved]
  - Drug eruption [Recovered/Resolved]

NARRATIVE: CASE EVENT DATE: 20160407
